FAERS Safety Report 14250706 (Version 2)
Quarter: 2018Q1

REPORT INFORMATION
  Report Type: Spontaneous
  Country: US (occurrence: US)
  Receive Date: 20171205
  Receipt Date: 20180131
  Transmission Date: 20180508
  Serious: No
  Sender: FDA-Public Use
  Company Number: US-PFIZER INC-2017513415

PATIENT
  Age: 86 Year
  Sex: Male

DRUGS (4)
  1. LEVOTHYROXINE SODIUM. [Suspect]
     Active Substance: LEVOTHYROXINE SODIUM
     Indication: HYPOTHYROIDISM
     Dosage: 0.75 MG, UNK
     Dates: start: 2008
  2. HYDROCORTISONE. [Suspect]
     Active Substance: HYDROCORTISONE
     Indication: PITUITARY TUMOUR BENIGN
     Dosage: 3 DF, DAILY (3-5MG, 2 MORNING 1 NOON)
     Dates: start: 2008
  3. BENAZEPRIL [Suspect]
     Active Substance: BENAZEPRIL HYDROCHLORIDE
     Dosage: UNK
  4. HYDROCORTISONE. [Suspect]
     Active Substance: HYDROCORTISONE
     Dosage: 15 MG, DAILY (3 TABLET)
     Route: 048
     Dates: start: 2010

REACTIONS (5)
  - Hypersensitivity [Unknown]
  - Rash [Unknown]
  - Reaction to excipient [Unknown]
  - Pruritus [Unknown]
  - Lip swelling [Unknown]
